FAERS Safety Report 9528389 (Version 1)
Quarter: 2013Q3

REPORT INFORMATION
  Report Type: Spontaneous
  Country: IL (occurrence: None)
  Receive Date: 20130913
  Receipt Date: 20130913
  Transmission Date: 20140515
  Serious: Yes (Hospitalization)
  Sender: FDA-Public Use
  Company Number: IL-ALKEM-000131

PATIENT
  Age: 78 Year
  Sex: Male
  Weight: 82 kg

DRUGS (1)
  1. METFORMIN [Suspect]
     Indication: TYPE 2 DIABETES MELLITUS
     Dosage: 1.0/DAY

REACTIONS (2)
  - Hepatocellular injury [None]
  - Cholestasis [None]
